FAERS Safety Report 10418885 (Version 1)
Quarter: 2014Q2

REPORT INFORMATION
  Report Type: Spontaneous
  Country: US (occurrence: None)
  Receive Date: 20140625
  Receipt Date: 20140625
  Transmission Date: 20141212
  Serious: Yes (Hospitalization)
  Sender: FDA-Public Use
  Company Number: A-US2014-95996

PATIENT
  Age: 34 Year
  Sex: Female

DRUGS (3)
  1. OPSUMIT [Suspect]
     Indication: PULMONARY ARTERIAL HYPERTENSION
     Route: 048
     Dates: start: 20131224
  2. FLOLAN (EPOPROSTENOL SODIUM) (1.5 MILLIGRAM, STERILE POWDER) (EPOPROSTENOL SODIUM) [Concomitant]
  3. COUMADIN (WARFARIN SODIUM) [Concomitant]

REACTIONS (3)
  - Fluid retention [None]
  - Dyspnoea [None]
  - Malaise [None]
